FAERS Safety Report 24715445 (Version 1)
Quarter: 2024Q4

REPORT INFORMATION
  Report Type: Spontaneous
  Country: US (occurrence: US)
  Receive Date: 20241210
  Receipt Date: 20241210
  Transmission Date: 20250114
  Serious: Yes (Hospitalization)
  Sender: ZYDUS PHARM
  Company Number: US-CADILA HEALTHCARE LIMITED-US-ZYDUS-115947

PATIENT

DRUGS (4)
  1. ACETAMINOPHEN [Suspect]
     Active Substance: ACETAMINOPHEN
     Indication: Neck pain
     Dosage: 650 MILLIGRAM, BID, AT HOME
     Route: 065
  2. ACETAMINOPHEN [Suspect]
     Active Substance: ACETAMINOPHEN
     Indication: Abdominal pain
     Dosage: 1000 MILLIGRAM, BID, IN HOSPITAL
     Route: 042
  3. FIORICET [Suspect]
     Active Substance: ACETAMINOPHEN\BUTALBITAL\CAFFEINE
     Indication: Abdominal pain
     Dosage: 2 DOSAGE FORM, TID (2 TABLETS OF FIORICET (APAP 600 MG) Q 8 HOURS) AT HOME
     Route: 065
  4. FIORICET [Suspect]
     Active Substance: ACETAMINOPHEN\BUTALBITAL\CAFFEINE
     Indication: Neck pain
     Dosage: UNK, BID, IN HOSPITAL
     Route: 065

REACTIONS (2)
  - Metabolic acidosis [Recovering/Resolving]
  - Overdose [Unknown]
